FAERS Safety Report 22593123 (Version 1)
Quarter: 2023Q2

REPORT INFORMATION
  Report Type: Spontaneous
  Country: US (occurrence: US)
  Receive Date: 20230613
  Receipt Date: 20230613
  Transmission Date: 20230721
  Serious: Yes (Other)
  Sender: FDA-Public Use
  Company Number: US-NOVOPROD-1073499

PATIENT
  Age: 41 Year
  Sex: Female

DRUGS (1)
  1. TRESIBA [Suspect]
     Active Substance: INSULIN DEGLUDEC
     Indication: Type 2 diabetes mellitus
     Dosage: 68 OR 70 UNITS AT NIGHT
     Route: 058
     Dates: start: 2020, end: 2022

REACTIONS (1)
  - Spinal cord neoplasm [Unknown]

NARRATIVE: CASE EVENT DATE: 20201001
